FAERS Safety Report 20306870 (Version 1)
Quarter: 2022Q1

REPORT INFORMATION
  Report Type: Spontaneous
  Country: US (occurrence: None)
  Receive Date: 20220106
  Receipt Date: 20220106
  Transmission Date: 20220424
  Serious: No
  Sender: FDA-Public Use
  Company Number: None

PATIENT
  Age: 66 Year
  Sex: Male
  Weight: 80.1 kg

DRUGS (11)
  1. EVUSHELD [Suspect]
     Active Substance: CILGAVIMAB\TIXAGEVIMAB
     Indication: Monoclonal antibody unconjugated therapy
     Dates: start: 20220105, end: 20220105
  2. ACYCLOVIR [Concomitant]
     Active Substance: ACYCLOVIR
  3. POTASSIUM CITRATE [Concomitant]
     Active Substance: POTASSIUM CITRATE
  4. LISINOPRIL [Concomitant]
     Active Substance: LISINOPRIL
  5. TAMLUSIN [Concomitant]
  6. OMEPRAZOLE [Concomitant]
     Active Substance: OMEPRAZOLE
  7. ALLUPURINOL [Concomitant]
  8. DOXYCYCLINE [Concomitant]
     Active Substance: DOXYCYCLINE
  9. ZOLPIDEM TARTRATE [Concomitant]
     Active Substance: ZOLPIDEM TARTRATE
  10. ATORVASTATIN [Concomitant]
     Active Substance: ATORVASTATIN
  11. LEVYTHROXINE [Concomitant]

REACTIONS (5)
  - Chest pain [None]
  - Abdominal pain upper [None]
  - Chills [None]
  - Nausea [None]
  - Infusion related reaction [None]

NARRATIVE: CASE EVENT DATE: 20220106
